FAERS Safety Report 15333041 (Version 1)
Quarter: 2018Q3

REPORT INFORMATION
  Report Type: Spontaneous
  Country: ES (occurrence: ES)
  Receive Date: 20180830
  Receipt Date: 20180830
  Transmission Date: 20181010
  Serious: Yes (Other)
  Sender: FDA-Public Use
  Company Number: ES-TEVA-2018-ES-949567

PATIENT
  Age: 87 Year
  Sex: Female

DRUGS (1)
  1. QUETIAPINE. [Suspect]
     Active Substance: QUETIAPINE
     Indication: AGGRESSION
     Dosage: 1 COMP (FOR RESTLESSNESS) (S / P) BEFORE BEDTIME (23H), ON 07/24/2018 1 COMP (IF INTENSE AGITATION)
     Route: 048
     Dates: start: 20180716, end: 20180726

REACTIONS (2)
  - Paradoxical drug reaction [Unknown]
  - Sedation complication [Unknown]

NARRATIVE: CASE EVENT DATE: 20180716
